FAERS Safety Report 5708717-3 (Version None)
Quarter: 2008Q2

REPORT INFORMATION
  Report Type: 
  Country: None (occurrence: None)
  Receive Date: 20080417
  Receipt Date: 20080411
  Transmission Date: 20081010
  Serious: Yes (Hospitalization)
  Sender: FDA-Public Use
  Company Number: IT-ABBOTT-07P-083-0425994-00

PATIENT
  Sex: Female
  Weight: 50 kg

DRUGS (9)
  1. HUMIRA [Suspect]
     Indication: RHEUMATOID ARTHRITIS
     Route: 058
     Dates: start: 20050526, end: 20061124
  2. HUMIRA [Suspect]
     Route: 058
     Dates: start: 20070117, end: 20070326
  3. METHYLPREDNISOLONE [Concomitant]
     Indication: RHEUMATOID ARTHRITIS
     Dates: start: 20060217, end: 20061123
  4. REPRA [Concomitant]
     Indication: PROPHYLAXIS AGAINST GASTROINTESTINAL ULCER
     Dates: start: 20011010, end: 20061124
  5. AVUV [Concomitant]
     Indication: RHEUMATOID ARTHRITIS
     Dates: start: 20020101
  6. METHOXSALEN [Concomitant]
     Indication: RHEUMATOID ARTHRITIS
     Dates: start: 20061124
  7. ESONEPROTO [Concomitant]
     Indication: PROPHYLAXIS AGAINST GASTROINTESTINAL ULCER
     Dates: start: 20051124
  8. CIPROFLOXACIN [Concomitant]
     Indication: INFECTION
     Dates: start: 20061124
  9. HUMIRA [Concomitant]
     Indication: RHEUMATOID ARTHRITIS
     Route: 058
     Dates: start: 20041101

REACTIONS (2)
  - GASTROINTESTINAL HAEMORRHAGE [None]
  - VASCULITIS GASTROINTESTINAL [None]
